FAERS Safety Report 9518650 (Version 1)
Quarter: 2013Q3

REPORT INFORMATION
  Report Type: Report from Study
  Country: NL (occurrence: NL)
  Receive Date: 20130912
  Receipt Date: 20130912
  Transmission Date: 20140515
  Serious: Yes (Other)
  Sender: FDA-Public Use
  Company Number: PHHY2013NL100352

PATIENT
  Sex: Male

DRUGS (4)
  1. ZOMETA [Suspect]
     Indication: PROSTATE CANCER METASTATIC
     Dosage: 4 MG, PER 100 ML; ONCE EVERY 3 WEEKS
  2. ZOMETA [Suspect]
     Dosage: 4 MG, PER 100 ML; ONCE EVERY 3 WEEKS
     Dates: start: 20120228
  3. ZOMETA [Suspect]
     Dosage: 4 MG, PER 100 ML; ONCE EVERY 3 WEEKS
     Dates: start: 20130725
  4. ZOMETA [Suspect]
     Dosage: 4 MG, PER 100 ML; ONCE EVERY 3 WEEKS
     Dates: start: 20130822

REACTIONS (1)
  - Osteonecrosis of jaw [Unknown]
